FAERS Safety Report 7392357-7 (Version None)
Quarter: 2011Q2

REPORT INFORMATION
  Report Type: 
  Country: None (occurrence: None)
  Receive Date: 20110404
  Receipt Date: 20110331
  Transmission Date: 20111010
  Serious: No
  Sender: FDA-Public Use
  Company Number: US-PFIZER INC-2011072291

PATIENT
  Sex: Female

DRUGS (1)
  1. GENOTROPIN [Suspect]

REACTIONS (3)
  - CONTUSION [None]
  - INCORRECT DOSE ADMINISTERED [None]
  - INJECTION SITE ATROPHY [None]
